FAERS Safety Report 11384037 (Version 1)
Quarter: 2015Q3

REPORT INFORMATION
  Report Type: Spontaneous
  Country: US (occurrence: US)
  Receive Date: 20150815
  Receipt Date: 20150815
  Transmission Date: 20151125
  Serious: Yes (Other)
  Sender: FDA-Public Use
  Company Number: US-CIPLA LTD.-2015US06511

PATIENT

DRUGS (3)
  1. EPIRUBICIN [Suspect]
     Active Substance: EPIRUBICIN
     Indication: TRIPLE NEGATIVE BREAST CANCER
     Dosage: 75 MG/M2, ON DAY 2 OF A 21 DAY CYCLE
     Route: 042
  2. DINACICLIB [Suspect]
     Active Substance: DINACICLIB
     Indication: TRIPLE NEGATIVE BREAST CANCER
     Dosage: ESCALATING DOSES (20 - 50 MG/M2) ON DAY 1 OF 21 DAYS CYCLE
     Route: 042
  3. PEGFILGASTRIM [Suspect]
     Active Substance: PEGFILGRASTIM
     Indication: TRIPLE NEGATIVE BREAST CANCER
     Dosage: 6 MG, 24 - 48 H FOLLOWING CHEMOTHERAPY
     Route: 058

REACTIONS (1)
  - Syncope [Unknown]
